FAERS Safety Report 8391402-X (Version None)
Quarter: 2012Q2

REPORT INFORMATION
  Report Type: 
  Country: None (occurrence: None)
  Receive Date: 20120529
  Receipt Date: 20120525
  Transmission Date: 20120825
  Serious: Yes (Hospitalization)
  Sender: FDA-Public Use
  Company Number: IT-SANOFI-AVENTIS-2012SA037300

PATIENT
  Age: 97 Year
  Sex: Female

DRUGS (7)
  1. RAMIPRIL [Suspect]
     Indication: HYPERTENSION
     Route: 048
     Dates: start: 20110724, end: 20111105
  2. LIMPIDEX [Concomitant]
     Dosage: STRENGTH; 30 MG
  3. LASIX [Suspect]
     Indication: HYPERTENSION
     Route: 048
     Dates: start: 20110603, end: 20111105
  4. ENOXAPARIN SODIUM [Concomitant]
     Dosage: STRENGTH; 4000 IU
  5. LUVION [Concomitant]
     Dosage: STRENGTH; 100 MG
  6. DILTIAZEM [Suspect]
     Indication: HYPERTENSION
     Route: 048
     Dates: start: 20110505, end: 20111101
  7. TRAZODONE HCL [Concomitant]
     Dosage: FORM; ORAL DROPS, STRENGTH; 25 MG/ML

REACTIONS (1)
  - SYNCOPE [None]
